FAERS Safety Report 20944651 (Version 2)
Quarter: 2022Q2

REPORT INFORMATION
  Report Type: Spontaneous
  Country: US (occurrence: US)
  Receive Date: 20220610
  Receipt Date: 20220622
  Transmission Date: 20220721
  Serious: No
  Sender: FDA-Public Use
  Company Number: US-GLAXOSMITHKLINE-US2022089740

PATIENT
  Age: 24 Year
  Sex: Female

DRUGS (1)
  1. FLONASE ALLERGY RELIEF [Suspect]
     Active Substance: FLUTICASONE PROPIONATE
     Indication: Seasonal allergy
     Dosage: 100 MG, USED FOR ABOUT 3 WEEKS, 24 HOUR NON DROWSY 144 SPRAYS
     Dates: start: 20220517, end: 20220606

REACTIONS (1)
  - Drug ineffective [Unknown]
